FAERS Safety Report 12647184 (Version 1)
Quarter: 2016Q3

REPORT INFORMATION
  Report Type: Spontaneous
  Country: US (occurrence: None)
  Receive Date: 20160811
  Receipt Date: 20160811
  Transmission Date: 20161109
  Serious: Yes (Life-Threatening, Hospitalization)
  Sender: FDA-Public Use
  Company Number: None

PATIENT
  Age: 47 Year
  Sex: Female
  Weight: 103.87 kg

DRUGS (7)
  1. PLAVIX [Concomitant]
     Active Substance: CLOPIDOGREL BISULFATE
  2. LIPITOR [Concomitant]
     Active Substance: ATORVASTATIN CALCIUM
  3. NITROGLYCERIN. [Concomitant]
     Active Substance: NITROGLYCERIN
  4. METOPROLOL. [Concomitant]
     Active Substance: METOPROLOL
  5. BABY ASPIRIN [Concomitant]
     Active Substance: ASPIRIN
  6. LEVOTHYROXINE. [Concomitant]
     Active Substance: LEVOTHYROXINE
  7. MIRENA [Suspect]
     Active Substance: LEVONORGESTREL
     Dates: start: 20020305, end: 20160714

REACTIONS (11)
  - Headache [None]
  - Depression [None]
  - Fatigue [None]
  - Nausea [None]
  - Decreased appetite [None]
  - Hypoaesthesia [None]
  - Myocardial infarction [None]
  - Coronary artery occlusion [None]
  - Influenza like illness [None]
  - Musculoskeletal pain [None]
  - Anxiety [None]

NARRATIVE: CASE EVENT DATE: 20160731
